FAERS Safety Report 14928096 (Version 2)
Quarter: 2019Q4

REPORT INFORMATION
  Report Type: Spontaneous
  Country: GB (occurrence: GB)
  Receive Date: 20180523
  Receipt Date: 20191120
  Transmission Date: 20200122
  Serious: Yes (Other)
  Sender: FDA-Public Use
  Company Number: GB-TEVA-2018-GB-894879

PATIENT
  Age: 57 Year
  Sex: Male
  Weight: 70 kg

DRUGS (2)
  1. PHENOXYMETHYLPENICILLIN [Suspect]
     Active Substance: PENICILLIN V
     Indication: TONSILLITIS
     Dosage: 2000 MILLIGRAM DAILY;
     Route: 048
     Dates: start: 20171109, end: 20171112
  2. PHENOXYMETHYLPENICILLIN [Suspect]
     Active Substance: PENICILLIN V
     Indication: TONSILLITIS
     Route: 048
     Dates: start: 20171112, end: 20171114

REACTIONS (5)
  - Periorbital swelling [Recovered/Resolved]
  - Swelling face [Recovering/Resolving]
  - Swollen tongue [Recovered/Resolved]
  - Mouth swelling [Unknown]
  - Rash [Unknown]

NARRATIVE: CASE EVENT DATE: 20171112
